FAERS Safety Report 6914704-X (Version None)
Quarter: 2010Q3

REPORT INFORMATION
  Report Type: 
  Country: None (occurrence: None)
  Receive Date: 20100804
  Receipt Date: 20100804
  Transmission Date: 20110219
  Serious: Yes (Hospitalization)
  Sender: FDA-Public Use
  Company Number: None

PATIENT
  Age: 72 Year
  Sex: Female
  Weight: 84 kg

DRUGS (1)
  1. DIPYRIDAMOLE [Suspect]
     Indication: ATRIAL FIBRILLATION
     Dosage: 50 MG ONCE IV
     Route: 042
     Dates: start: 20100728, end: 20100728

REACTIONS (5)
  - DIZZINESS [None]
  - NAUSEA [None]
  - PALPITATIONS [None]
  - TACHYCARDIA [None]
  - VOMITING [None]
